FAERS Safety Report 5332404-7 (Version None)
Quarter: 2007Q2

REPORT INFORMATION
  Report Type: 
  Country: None (occurrence: None)
  Receive Date: 20070522
  Receipt Date: 20070522
  Transmission Date: 20071010
  Serious: Yes (Hospitalization)
  Sender: FDA-Public Use
  Company Number: None

PATIENT
  Sex: Male
  Weight: 51.1657 kg

DRUGS (1)
  1. DOCETAXEL [Suspect]
     Indication: METASTATIC NEOPLASM
     Dosage: 8 MG ONCE IV
     Route: 042
     Dates: start: 20070508

REACTIONS (2)
  - CORONARY ARTERY OCCLUSION [None]
  - CORONARY ARTERY STENOSIS [None]
